FAERS Safety Report 5052886-8 (Version None)
Quarter: 2006Q3

REPORT INFORMATION
  Report Type: 
  Country: None (occurrence: None)
  Receive Date: 20060712
  Receipt Date: 20060627
  Transmission Date: 20061208
  Serious: Yes (Death)
  Sender: FDA-Public Use
  Company Number: 2005S1011736

PATIENT
  Age: 49 Year
  Sex: Male
  Weight: 70.3075 kg

DRUGS (9)
  1. FENTANYL TRANSDERMAL SYSTEM [Suspect]
     Indication: BACK PAIN
     Dosage: 100 MCG/HR; 1X; TDER
     Route: 062
     Dates: start: 20050705
  2. FENTANYL TRANSDERMAL SYSTEM [Suspect]
     Indication: NECK PAIN
     Dosage: 100 MCG/HR; 1X; TDER
     Route: 062
     Dates: start: 20050705
  3. FENTANYL TRANSDERMAL SYSTEM [Suspect]
     Indication: PAIN
     Dosage: 100 MCG/HR; 1X; TDER
     Route: 062
     Dates: start: 20050705
  4. CHLORDIAZEPOXIDE (CON.) [Concomitant]
  5. OXYCODONE (CON.) [Concomitant]
  6. GABAPENTIN (CON.) [Concomitant]
  7. IBUPROFEN (CON.) [Concomitant]
  8. PARACETAMOL (CON.) [Concomitant]
  9. PERCOCET (CON.) [Concomitant]

REACTIONS (6)
  - DRUG LEVEL INCREASED [None]
  - DRUG TOXICITY [None]
  - HYPOVENTILATION [None]
  - LOSS OF CONSCIOUSNESS [None]
  - PULMONARY OEDEMA [None]
  - SNORING [None]
